FAERS Safety Report 7030576-X (Version None)
Quarter: 2010Q4

REPORT INFORMATION
  Report Type: 
  Country: None (occurrence: None)
  Receive Date: 20101006
  Receipt Date: 20090527
  Transmission Date: 20110411
  Serious: Yes (Other)
  Sender: FDA-Public Use
  Company Number: GB-SOLVAY-00310006015

PATIENT
  Age: 56 Year
  Sex: Male

DRUGS (2)
  1. TESTIM [Concomitant]
     Indication: HYPOGONADISM
     Dosage: DAILY DOSE:  UNKNOWN
     Route: 061
     Dates: start: 20081201, end: 20090108
  2. TESTOSTERONE [Suspect]
     Indication: HYPOGONADISM
     Dosage: DAILY DOSE: .5 DOSAGE FORM
     Route: 062
     Dates: start: 20090107, end: 20090110

REACTIONS (4)
  - DYSPHAGIA [None]
  - DYSPNOEA [None]
  - SWOLLEN TONGUE [None]
  - TONGUE ULCERATION [None]
